FAERS Safety Report 21932080 (Version 1)
Quarter: 2023Q1

REPORT INFORMATION
  Report Type: Spontaneous
  Country: US (occurrence: US)
  Receive Date: 20230131
  Receipt Date: 20230131
  Transmission Date: 20230417
  Serious: No
  Sender: FDA-Public Use
  Company Number: US-BAYER-2023A010545

PATIENT
  Age: 65 Year
  Sex: Female

DRUGS (4)
  1. MIRALAX [Suspect]
     Active Substance: POLYETHYLENE GLYCOL 3350
     Indication: Gastrointestinal disorder
     Dosage: UNK, BID
     Dates: start: 202210, end: 202212
  2. MIRALAX [Suspect]
     Active Substance: POLYETHYLENE GLYCOL 3350
     Indication: Colonoscopy
     Dosage: UNK UNK, QD
  3. MIRALAX [Suspect]
     Active Substance: POLYETHYLENE GLYCOL 3350
     Indication: Constipation
     Dosage: 17 G, Q72HR
     Route: 048
     Dates: end: 20230123
  4. LINZESS [Concomitant]
     Active Substance: LINACLOTIDE
     Dosage: UNK

REACTIONS (5)
  - Dry mouth [Not Recovered/Not Resolved]
  - Dehydration [None]
  - Off label use [None]
  - Off label use [None]
  - Inappropriate schedule of product administration [None]

NARRATIVE: CASE EVENT DATE: 20220701
